FAERS Safety Report 7280015-9 (Version None)
Quarter: 2011Q1

REPORT INFORMATION
  Report Type: 
  Country: None (occurrence: None)
  Receive Date: 20110125
  Receipt Date: 20110113
  Transmission Date: 20110831
  Serious: Yes (Death)
  Sender: FDA-Public Use
  Company Number: MC201100014

PATIENT

DRUGS (1)
  1. ANGIOMAX [Suspect]
     Indication: SURGERY
     Dosage: 1.75 MG/KG, HR

REACTIONS (1)
  - OVERDOSE [None]
